FAERS Safety Report 11117069 (Version 2)
Quarter: 2015Q3

REPORT INFORMATION
  Report Type: Spontaneous
  Country: US (occurrence: US)
  Receive Date: 20150515
  Receipt Date: 20150821
  Transmission Date: 20151125
  Serious: No
  Sender: FDA-Public Use
  Company Number: US-PFIZER INC-2015122703

PATIENT
  Age: 68 Year
  Sex: Female
  Weight: 73 kg

DRUGS (11)
  1. LYRICA [Concomitant]
     Active Substance: PREGABALIN
     Dosage: UNK
  2. LISINOPRIL. [Concomitant]
     Active Substance: LISINOPRIL
     Dosage: UNK
  3. RITALIN [Concomitant]
     Active Substance: METHYLPHENIDATE HYDROCHLORIDE
     Dosage: UNK
  4. LEVETIRACETAM. [Concomitant]
     Active Substance: LEVETIRACETAM
     Indication: SEIZURE
     Dosage: 1000 MG AT 1 TAB IN A.M 2 AT BED TIME
  5. INLYTA [Suspect]
     Active Substance: AXITINIB
     Indication: RENAL CELL CARCINOMA
     Dosage: 7 MG, 2X/DAY
  6. INLYTA [Suspect]
     Active Substance: AXITINIB
     Dosage: 5 MG, 2X/DAY
  7. GLIPIZIDE. [Concomitant]
     Active Substance: GLIPIZIDE
     Indication: TYPE 2 DIABETES MELLITUS
     Dosage: 2X/DAY ((10 MG), ? TAB 2 TIMES DAILY BEFORE MEALS)
  8. OXYCONTIN [Concomitant]
     Active Substance: OXYCODONE HYDROCHLORIDE
     Indication: PAIN
     Dosage: 30 MG, 2X/DAY (DAILY)
  9. ONDANSETRON [Concomitant]
     Active Substance: ONDANSETRON
     Dosage: 8 MG, UNK
  10. TRIAMTERENE/ HCTZ [Concomitant]
     Dosage: (37.5 MG TRIAMTERENE / 25 MG HCTZ)
  11. OMEPRAZOLE. [Concomitant]
     Active Substance: OMEPRAZOLE
     Indication: REFLUX GASTRITIS
     Dosage: 40 MG, DAILY (1 CAPSULE DAILY BEFORE MEAL)

REACTIONS (3)
  - Dysphonia [Not Recovered/Not Resolved]
  - Stomatitis [Recovering/Resolving]
  - Hypophagia [Recovered/Resolved]

NARRATIVE: CASE EVENT DATE: 201501
